FAERS Safety Report 8415271-4 (Version None)
Quarter: 2012Q2

REPORT INFORMATION
  Report Type: 
  Country: None (occurrence: None)
  Receive Date: 20120606
  Receipt Date: 20120529
  Transmission Date: 20120825
  Serious: Yes (Other)
  Sender: FDA-Public Use
  Company Number: US-US-EMD SERONO, INC.-7106591

PATIENT
  Sex: Female

DRUGS (5)
  1. OXYBUTYNIN [Concomitant]
     Indication: PRODUCT USED FOR UNKNOWN INDICATION
  2. REBIF [Suspect]
     Indication: MULTIPLE SCLEROSIS
     Route: 058
     Dates: start: 20050826
  3. EFFEXOR [Concomitant]
     Indication: PRODUCT USED FOR UNKNOWN INDICATION
  4. ADVAIR DISKUS 100/50 [Concomitant]
     Indication: ASTHMA
  5. BACLOFEN [Concomitant]
     Indication: PRODUCT USED FOR UNKNOWN INDICATION

REACTIONS (8)
  - BREAST CANCER IN SITU [None]
  - FALL [None]
  - VISUAL ACUITY REDUCED [None]
  - UPPER LIMB FRACTURE [None]
  - POSTOPERATIVE WOUND INFECTION [None]
  - MEMORY IMPAIRMENT [None]
  - INJECTION SITE SCAR [None]
  - INJECTION SITE REACTION [None]
